FAERS Safety Report 14271018 (Version 6)
Quarter: 2022Q1

REPORT INFORMATION
  Report Type: Spontaneous
  Country: DE (occurrence: DE)
  Receive Date: 20171211
  Receipt Date: 20220210
  Transmission Date: 20220423
  Serious: Yes (Death, Life-Threatening, Other)
  Sender: FDA-Public Use
  Company Number: DE-BRISTOL-MYERS SQUIBB COMPANY-BMS-2016-048385

PATIENT
  Age: 43 Year
  Sex: Male
  Weight: 133 kg

DRUGS (11)
  1. ABILIFY [Interacting]
     Active Substance: ARIPIPRAZOLE
     Indication: Product used for unknown indication
     Dosage: 7.5 MG, UNK
     Route: 048
  2. DIAZEPAM [Interacting]
     Active Substance: DIAZEPAM
     Indication: Product used for unknown indication
     Dosage: 8 MG, QD
     Route: 048
  3. VALPROATE SODIUM [Interacting]
     Active Substance: VALPROATE SODIUM
     Indication: Product used for unknown indication
     Dosage: 1600 MG, QD (1600 MG MILLIGRAM(S)), EVERY DAY
     Route: 048
  4. BENPERIDOL [Interacting]
     Active Substance: BENPERIDOL
     Indication: Product used for unknown indication
     Dosage: 8 MG, QD (8 MG MILLIGRAM(S)EVERY DAY)
     Route: 048
  5. TAVOR (LORAZEPAM) [Interacting]
     Active Substance: LORAZEPAM
     Indication: Product used for unknown indication
     Dosage: UNK (1-3 MG)
     Route: 048
  6. VALPROIC ACID [Interacting]
     Active Substance: VALPROIC ACID
     Indication: Product used for unknown indication
     Dosage: 1000 MG, UNK
     Route: 065
  7. LORAZEPAM [Interacting]
     Active Substance: LORAZEPAM
     Indication: Product used for unknown indication
     Dosage: UNK (1-3 MG)
     Route: 048
  8. VALPROIC ACID [Interacting]
     Active Substance: VALPROIC ACID
     Indication: Product used for unknown indication
     Dosage: 1000 MG, UNK
     Route: 065
  9. OLANZAPINE [Interacting]
     Active Substance: OLANZAPINE
     Indication: Product used for unknown indication
     Dosage: 1 DF, UNK (PRN) (5-10 MG)
     Route: 048
  10. AKINETON [Concomitant]
     Active Substance: BIPERIDEN HYDROCHLORIDE
     Indication: Product used for unknown indication
     Dosage: 1 DF, UNK
     Route: 048
  11. GASTROZEPIN [Concomitant]
     Active Substance: PIRENZEPINE HYDROCHLORIDE
     Indication: Product used for unknown indication
     Dosage: 1 DF, UNK
     Route: 048

REACTIONS (4)
  - Sudden death [Fatal]
  - Sedation [Unknown]
  - Drug interaction [Unknown]
  - Underdose [Unknown]
